FAERS Safety Report 6883247-4 (Version None)
Quarter: 2010Q3

REPORT INFORMATION
  Report Type: 
  Country: None (occurrence: None)
  Receive Date: 20100727
  Receipt Date: 20100505
  Transmission Date: 20110219
  Serious: Yes (Hospitalization, Other)
  Sender: FDA-Public Use
  Company Number: LEO-2010-00387

PATIENT
  Age: 26 Year
  Sex: Female
  Weight: 57 kg

DRUGS (3)
  1. INNOHEP [Suspect]
     Indication: THROMBOSIS PROPHYLAXIS
     Dosage: (4500 IU)
     Dates: start: 20061009, end: 20070429
  2. PENICILLIN (BENZYL-PENICILLIN) [Concomitant]
  3. VITAMINS (VITAMINS /90003601/) [Concomitant]

REACTIONS (2)
  - DRUG EXPOSURE DURING PREGNANCY [None]
  - PREMATURE SEPARATION OF PLACENTA [None]
